FAERS Safety Report 9791221 (Version 4)
Quarter: 2014Q4

REPORT INFORMATION
  Report Type: Report from Study
  Country: JP (occurrence: JP)
  Receive Date: 20140101
  Receipt Date: 20141219
  Transmission Date: 20150529
  Serious: Yes (Other)
  Sender: FDA-Public Use
  Company Number: JP-AMGEN-JPNCT2013090872

PATIENT
  Age: 78 Year
  Sex: Female
  Weight: 61 kg

DRUGS (17)
  1. AVASTIN [Concomitant]
     Active Substance: BEVACIZUMAB
     Dosage: 600 MG, QD
     Route: 065
     Dates: start: 20130515, end: 20130918
  2. DECADRON [Concomitant]
     Active Substance: DEXAMETHASONE
     Dosage: 9.9 MG, UNK
     Route: 050
     Dates: start: 20130515, end: 20130918
  3. ALFAROL [Concomitant]
     Active Substance: ALFACALCIDOL
     Dosage: 1 MUG, QD
     Route: 048
     Dates: start: 20130515, end: 20130611
  4. XELODA [Concomitant]
     Active Substance: CAPECITABINE
     Dosage: 900 MG, BID
     Route: 048
     Dates: start: 20131009, end: 20131223
  5. ENDOXAN                            /00021101/ [Concomitant]
     Active Substance: CYCLOPHOSPHAMIDE
     Dosage: 50 MG, BID
     Route: 048
     Dates: start: 20131009, end: 20131223
  6. MAINTATE [Concomitant]
     Active Substance: BISOPROLOL FUMARATE
     Dosage: 2.5 MG, QD
     Route: 048
     Dates: start: 20131015
  7. PACLITAXEL. [Concomitant]
     Active Substance: PACLITAXEL
     Dosage: 120 MG, QD
     Route: 050
     Dates: start: 20130515, end: 20130918
  8. PARIET [Concomitant]
     Active Substance: RABEPRAZOLE SODIUM
     Dosage: 10 MG, QD
     Route: 048
     Dates: end: 20131002
  9. ZOMETA [Concomitant]
     Active Substance: ZOLEDRONIC ACID
     Dosage: 3 MG, QD
     Route: 042
     Dates: start: 20131009, end: 20140108
  10. MAGLAX [Concomitant]
     Active Substance: MAGNESIUM OXIDE
     Dosage: 1500 MG, QD
     Route: 048
     Dates: end: 20131002
  11. ONEDURO [Concomitant]
     Active Substance: FENTANYL
     Dosage: 0.84 MG, QD
     Route: 050
     Dates: start: 20130612, end: 20131028
  12. DENOSUMAB [Suspect]
     Active Substance: DENOSUMAB
     Indication: METASTASES TO BONE
     Dosage: 120 MG, UNK
     Route: 058
     Dates: start: 20130515, end: 20130904
  13. DENOTAS [Concomitant]
     Active Substance: CALCIUM CARBONATE\CHOLECALCIFEROL\MAGNESIUM CARBONATE
     Dosage: 2 DF, QD
     Route: 048
     Dates: start: 20130612, end: 20131003
  14. PEON [Concomitant]
     Active Substance: ZALTOPROFEN
     Dosage: 240 MG, QD
     Route: 048
     Dates: end: 20131002
  15. PURSENNID                          /00142207/ [Concomitant]
     Active Substance: SENNOSIDES A AND B
     Dosage: 36 MG, QD
     Route: 048
     Dates: end: 20131002
  16. STRONG NEO-MINOPHAGEN C [Concomitant]
     Active Substance: AMMONIUM GLYCYRRHIZATE\CYSTEINE HYDROCHLORIDE\GLYCINE
     Dosage: 40 ML, QD
     Route: 042
     Dates: start: 20131002, end: 20131009
  17. ASPARA-CA [Concomitant]
     Active Substance: CALCIUM ASPARTATE
     Dosage: 600 MG, QD
     Route: 048
     Dates: start: 20130515, end: 20130611

REACTIONS (2)
  - Osteonecrosis of jaw [Recovering/Resolving]
  - Liver disorder [Recovered/Resolved]

NARRATIVE: CASE EVENT DATE: 20131002
